FAERS Safety Report 13369137 (Version 1)
Quarter: 2017Q1

REPORT INFORMATION
  Report Type: Report from Study
  Country: US (occurrence: US)
  Receive Date: 20170324
  Receipt Date: 20170324
  Transmission Date: 20170429
  Serious: Yes (Death, Hospitalization)
  Sender: FDA-Public Use
  Company Number: US-JNJFOC-20170201183

PATIENT
  Age: 82 Year
  Sex: Female
  Weight: 63.49 kg

DRUGS (10)
  1. ALLOPURINOL. [Concomitant]
     Active Substance: ALLOPURINOL
  2. CALCIUM [Concomitant]
     Active Substance: CALCIUM
  3. NORVASC [Concomitant]
     Active Substance: AMLODIPINE BESYLATE
  4. ASA [Suspect]
     Active Substance: ASPIRIN
     Indication: PRODUCT USED FOR UNKNOWN INDICATION
     Route: 065
  5. IMBRUVICA [Suspect]
     Active Substance: IBRUTINIB
     Indication: CHRONIC LYMPHOCYTIC LEUKAEMIA
     Route: 048
     Dates: start: 20161115, end: 20170117
  6. ZOCOR [Concomitant]
     Active Substance: SIMVASTATIN
  7. ZINC. [Concomitant]
     Active Substance: ZINC
  8. CHOLECALCIFEROL [Concomitant]
     Active Substance: CHOLECALCIFEROL
  9. ANTIVERT [Concomitant]
     Active Substance: MECLIZINE HYDROCHLORIDE
  10. NORCO [Concomitant]
     Active Substance: ACETAMINOPHEN\HYDROCODONE BITARTRATE

REACTIONS (12)
  - Deep vein thrombosis [Fatal]
  - Rash [Unknown]
  - Red blood cell count decreased [Unknown]
  - Peripheral swelling [Unknown]
  - Disease progression [Fatal]
  - Thrombocytopenia [Unknown]
  - Abdominal distension [Unknown]
  - Anaemia [Unknown]
  - Splenic infection [Unknown]
  - Catheter site haemorrhage [Unknown]
  - White blood cell count increased [Unknown]
  - Haemoglobin decreased [Unknown]

NARRATIVE: CASE EVENT DATE: 20170117
